FAERS Safety Report 23526697 (Version 1)
Quarter: 2024Q1

REPORT INFORMATION
  Report Type: Spontaneous
  Country: DK (occurrence: DK)
  Receive Date: 20240215
  Receipt Date: 20240215
  Transmission Date: 20240410
  Serious: Yes (Other)
  Sender: FDA-Public Use
  Company Number: None

PATIENT
  Age: 52 Year
  Sex: Male
  Weight: 91 kg

DRUGS (4)
  1. ENSTILAR [Suspect]
     Active Substance: BETAMETHASONE DIPROPIONATE\CALCIPOTRIENE HYDRATE
     Indication: Psoriasis
     Dosage: STRENGTH: 50 ?G/G + 0.5 MG/G?DOSAGE: UNKNOWN BUT ACCORDING TO INSTRUCTIONS
     Route: 003
     Dates: start: 20201229, end: 20231120
  2. LOSARTAN [Concomitant]
     Active Substance: LOSARTAN
     Indication: Hypertension
     Dosage: STRENGTH: 100 MG
     Route: 048
     Dates: start: 20210520
  3. AMLODIPINE BESYLATE [Concomitant]
     Active Substance: AMLODIPINE BESYLATE
     Indication: Hypertension
     Dosage: STRENGTH: 5 MG
     Route: 048
     Dates: start: 20210916
  4. SPIRONOLACTONE [Concomitant]
     Active Substance: SPIRONOLACTONE
     Indication: Hypertension
     Dosage: STRENGTH: 25 MG
     Route: 048
     Dates: start: 20220128

REACTIONS (1)
  - Central serous chorioretinopathy [Recovering/Resolving]

NARRATIVE: CASE EVENT DATE: 20230808
